FAERS Safety Report 4521949-5 (Version None)
Quarter: 2004Q4

REPORT INFORMATION
  Report Type: 
  Country: None (occurrence: None)
  Receive Date: 20041207
  Receipt Date: 20041124
  Transmission Date: 20050328
  Serious: Yes (Hospitalization, Other)
  Sender: FDA-Public Use
  Company Number: USA041082115

PATIENT
  Age: 88 Year
  Sex: Female
  Weight: 48 kg

DRUGS (9)
  1. FORTEO [Suspect]
     Indication: OSTEOPOROSIS
     Dosage: 20 UG/1 DAY
     Dates: start: 20040301
  2. BEXTRA [Concomitant]
  3. FUROSEMIDE [Concomitant]
  4. PREVACID [Concomitant]
  5. DIGOXIN [Concomitant]
  6. ULTRACET [Concomitant]
  7. POTASSIUM [Concomitant]
  8. CENTRUM PLUS [Concomitant]
  9. TYLENOL [Concomitant]

REACTIONS (2)
  - PEPTIC ULCER HAEMORRHAGE [None]
  - PHARMACEUTICAL PRODUCT COMPLAINT [None]
